FAERS Safety Report 21191590 (Version 1)
Quarter: 2022Q3

REPORT INFORMATION
  Report Type: Spontaneous
  Country: US (occurrence: US)
  Receive Date: 20220809
  Receipt Date: 20220809
  Transmission Date: 20221027
  Serious: Yes (Hospitalization, Other)
  Sender: FDA-Public Use
  Company Number: US-GLAXOSMITHKLINE-2019-BI-113323

PATIENT

DRUGS (6)
  1. ADVIL [Suspect]
     Active Substance: IBUPROFEN
     Indication: Product used for unknown indication
     Dosage: UNK
  2. OFEV [Suspect]
     Active Substance: NINTEDANIB
     Indication: Idiopathic pulmonary fibrosis
     Dosage: 150 MG, BID
     Route: 048
     Dates: start: 20191024, end: 20200908
  3. OFEV [Suspect]
     Active Substance: NINTEDANIB
     Dosage: 100 MG, BID
     Route: 048
     Dates: start: 20201001
  4. OFEV [Suspect]
     Active Substance: NINTEDANIB
     Dosage: 100 MG, BID
     Route: 048
     Dates: start: 20201001
  5. OFEV [Suspect]
     Active Substance: NINTEDANIB
     Dosage: 100 MG, BID
     Route: 048
     Dates: start: 20201001
  6. MEFENAMIC ACID [Suspect]
     Active Substance: MEFENAMIC ACID
     Indication: Product used for unknown indication
     Dosage: UNK

REACTIONS (23)
  - Lumbar vertebral fracture [Recovering/Resolving]
  - Spinal operation [Unknown]
  - Hip surgery [Unknown]
  - Hip arthroplasty [Recovering/Resolving]
  - Vertebroplasty [Recovering/Resolving]
  - Back pain [Recovering/Resolving]
  - Seasonal allergy [Unknown]
  - Arthralgia [Unknown]
  - Scoliosis [Unknown]
  - Liver disorder [Unknown]
  - Diarrhoea [Unknown]
  - Nausea [Not Recovered/Not Resolved]
  - Decreased appetite [Unknown]
  - Oesophageal disorder [Unknown]
  - Dyspepsia [Not Recovered/Not Resolved]
  - Fungal infection [Unknown]
  - Illness [Unknown]
  - Gastric disorder [Unknown]
  - Abdominal pain upper [Unknown]
  - Weight decreased [Unknown]
  - Parosmia [Unknown]
  - Procedural pain [Not Recovered/Not Resolved]
  - Vomiting [Unknown]

NARRATIVE: CASE EVENT DATE: 20191001
